FAERS Safety Report 7492226-8 (Version None)
Quarter: 2011Q2

REPORT INFORMATION
  Report Type: 
  Country: None (occurrence: None)
  Receive Date: 20110519
  Receipt Date: 20101130
  Transmission Date: 20111010
  Serious: No
  Sender: FDA-Public Use
  Company Number: US-NOVEN-ALL1-2010-06247

PATIENT
  Sex: Male
  Weight: 96.145 kg

DRUGS (2)
  1. DAYTRANA [Suspect]
     Dosage: UNK MG, 1X/DAY:QD (20 MG PATCH CUT IN HALF)
     Route: 062
     Dates: start: 20101101, end: 20101101
  2. DAYTRANA [Suspect]
     Dosage: 20 MG, 1X/DAY:QD
     Route: 062
     Dates: start: 20101101

REACTIONS (6)
  - DRUG PRESCRIBING ERROR [None]
  - APPLICATION SITE ERYTHEMA [None]
  - WRONG TECHNIQUE IN DRUG USAGE PROCESS [None]
  - INCORRECT DOSE ADMINISTERED [None]
  - ACNE [None]
  - DRUG ADMINISTERED AT INAPPROPRIATE SITE [None]
